FAERS Safety Report 19994855 (Version 1)
Quarter: 2021Q4

REPORT INFORMATION
  Report Type: Spontaneous
  Country: US (occurrence: US)
  Receive Date: 20211025
  Receipt Date: 20211025
  Transmission Date: 20220304
  Serious: Yes (Death, Other)
  Sender: FDA-Public Use
  Company Number: US-GLAXOSMITHKLINE-US2021220108

PATIENT
  Age: 64 Year
  Sex: Male

DRUGS (1)
  1. TRELEGY ELLIPTA [Suspect]
     Active Substance: FLUTICASONE FUROATE\UMECLIDINIUM BROMIDE\VILANTEROL TRIFENATATE
     Indication: Product used for unknown indication
     Dosage: UNK, QD, 100-62.5-25 MCG
     Route: 055
     Dates: start: 20201015

REACTIONS (2)
  - Death [Fatal]
  - Brain neoplasm malignant [Unknown]

NARRATIVE: CASE EVENT DATE: 20211020
